FAERS Safety Report 4476009-9 (Version None)
Quarter: 2004Q3

REPORT INFORMATION
  Report Type: 
  Country: None (occurrence: None)
  Receive Date: 20040923
  Receipt Date: 20040617
  Transmission Date: 20050211
  Serious: No
  Sender: FDA-Public Use
  Company Number: USA040670508

PATIENT
  Age: 65 Year
  Sex: Female

DRUGS (3)
  1. FORTEO [Suspect]
     Indication: OSTEOPOROSIS
     Dates: start: 20040401
  2. METHOTREXATE [Concomitant]
  3. FOSAMAX [Concomitant]

REACTIONS (3)
  - DIFFICULTY IN WALKING [None]
  - INSOMNIA [None]
  - MUSCLE CRAMP [None]
